FAERS Safety Report 23034527 (Version 1)
Quarter: 2023Q4

REPORT INFORMATION
  Report Type: Spontaneous
  Country: CN (occurrence: CN)
  Receive Date: 20231005
  Receipt Date: 20231005
  Transmission Date: 20240110
  Serious: Yes (Other)
  Sender: FDA-Public Use
  Company Number: None

PATIENT
  Age: 52 Year
  Sex: Female
  Weight: 50 kg

DRUGS (2)
  1. MANNITOL [Suspect]
     Active Substance: MANNITOL
     Indication: Diuretic therapy
     Dosage: 125 ML ONCE DAILY, DOSAGE FORM: INJECTION
     Route: 041
     Dates: start: 20230920, end: 20230920
  2. MANNITOL [Suspect]
     Active Substance: MANNITOL
     Indication: Oedema

REACTIONS (3)
  - Hypoaesthesia [Recovering/Resolving]
  - Abdominal pain [Recovering/Resolving]
  - Discomfort [Recovering/Resolving]

NARRATIVE: CASE EVENT DATE: 20230920
